FAERS Safety Report 20062004 (Version 2)
Quarter: 2021Q4

REPORT INFORMATION
  Report Type: Spontaneous
  Country: US (occurrence: US)
  Receive Date: 20211112
  Receipt Date: 20211201
  Transmission Date: 20220303
  Serious: Yes (Other)
  Sender: FDA-Public Use
  Company Number: US-BAYER-2021A244012

PATIENT
  Sex: Female

DRUGS (4)
  1. KOGENATE FS [Suspect]
     Active Substance: ANTIHEMOPHILIC FACTOR, HUMAN RECOMBINANT
     Indication: Factor VIII deficiency
     Dosage: 1,500 UNITS (+/-10%) INTO THE VEIN DAILY AS NEEDED (FOR BREAKTHROUGH BLEEDING OR IN PREPARATION/AFTE
     Route: 042
  2. KOGENATE FS [Suspect]
     Active Substance: ANTIHEMOPHILIC FACTOR, HUMAN RECOMBINANT
     Indication: Factor VIII deficiency
     Dosage: 1,500 UNITS (+/-10%) INTO THE VEIN DAILY AS NEEDED (FOR BREAKTHROUGH BLEEDING OR IN PREPARATION/AFTE
     Route: 042
  3. KOGENATE FS [Suspect]
     Active Substance: ANTIHEMOPHILIC FACTOR, HUMAN RECOMBINANT
     Indication: Factor VIII deficiency
     Dosage: 1,500 UNITS (+/-10%) INTO THE VEIN DAILY AS NEEDED (FOR BREAKTHROUGH BLEEDING OR IN PREPARATION/AFTE
     Route: 042
  4. KOGENATE FS [Suspect]
     Active Substance: ANTIHEMOPHILIC FACTOR, HUMAN RECOMBINANT
     Indication: Factor VIII deficiency
     Dosage: 1,500 UNITS (+/-10%) INTO THE VEIN DAILY AS NEEDED (FOR BREAKTHROUGH BLEEDING OR IN PREPARATION/AFTE
     Route: 042

REACTIONS (2)
  - Haemarthrosis [Unknown]
  - Fall [None]
